FAERS Safety Report 6047781-1 (Version None)
Quarter: 2009Q1

REPORT INFORMATION
  Report Type: 
  Country: None (occurrence: None)
  Receive Date: 20090123
  Receipt Date: 20090113
  Transmission Date: 20090719
  Serious: Yes (Hospitalization, Other)
  Sender: FDA-Public Use
  Company Number: US-CELGENEUS-028-C5013-07120984

PATIENT
  Sex: Male
  Weight: 82 kg

DRUGS (9)
  1. REVLIMID [Suspect]
     Indication: MULTIPLE MYELOMA
     Route: 048
     Dates: start: 20071023, end: 20071104
  2. DEXAMETHASONE [Suspect]
     Indication: MULTIPLE MYELOMA
     Route: 048
     Dates: start: 20071023, end: 20071026
  3. COUMADIN [Concomitant]
     Route: 065
  4. SODIUM BICARBONATE [Concomitant]
     Indication: DRUG USE FOR UNKNOWN INDICATION
     Route: 048
     Dates: start: 20071101
  5. ZOPICLONE [Concomitant]
     Indication: DRUG USE FOR UNKNOWN INDICATION
     Route: 048
  6. METOPROLOL [Concomitant]
     Indication: ATRIAL FIBRILLATION
     Route: 048
     Dates: start: 20071110, end: 20071202
  7. MIRTAZAPINE [Concomitant]
     Indication: DEPRESSION
     Route: 048
     Dates: start: 20071207
  8. OLANZAPINE [Concomitant]
     Indication: DEPRESSION
     Route: 048
     Dates: start: 20071123
  9. HYDROCORTISONE [Concomitant]
     Indication: DRUG USE FOR UNKNOWN INDICATION
     Route: 051
     Dates: start: 20071110, end: 20071120

REACTIONS (10)
  - ATRIAL FIBRILLATION [None]
  - CONFUSIONAL STATE [None]
  - DEHYDRATION [None]
  - LISTERIOSIS [None]
  - LOBAR PNEUMONIA [None]
  - NEUTROPENIA [None]
  - RENAL FAILURE [None]
  - RENAL FAILURE ACUTE [None]
  - RHABDOMYOLYSIS [None]
  - THROMBOCYTOPENIA [None]
